FAERS Safety Report 21093152 (Version 3)
Quarter: 2022Q4

REPORT INFORMATION
  Report Type: Report from Study
  Country: US (occurrence: US)
  Receive Date: 20220718
  Receipt Date: 20221011
  Transmission Date: 20230113
  Serious: No
  Sender: FDA-Public Use
  Company Number: US-NOVARTISTESTPH-NVSC2022US162257

PATIENT
  Age: 77 Year
  Sex: Female

DRUGS (1)
  1. ILARIS [Suspect]
     Active Substance: CANAKINUMAB
     Indication: Pyrexia
     Dosage: 150 MG, OTHER, (EVERY 4 WEEKS)
     Route: 058
     Dates: start: 20210330

REACTIONS (1)
  - SARS-CoV-2 test positive [Recovered/Resolved]

NARRATIVE: CASE EVENT DATE: 20220627
